FAERS Safety Report 10581799 (Version 9)
Quarter: 2016Q1

REPORT INFORMATION
  Report Type: Spontaneous
  Country: US (occurrence: US)
  Receive Date: 20141113
  Receipt Date: 20160122
  Transmission Date: 20160525
  Serious: Yes (Hospitalization)
  Sender: FDA-Public Use
  Company Number: US-ACTELION-A-US2014-107781

PATIENT
  Age: 45 Year
  Sex: Female

DRUGS (27)
  1. COLACE [Concomitant]
     Active Substance: DOCUSATE SODIUM
  2. FOLIC ACID. [Concomitant]
     Active Substance: FOLIC ACID
  3. AFRIN [Concomitant]
     Active Substance: OXYMETAZOLINE
  4. ZOLOFT [Concomitant]
     Active Substance: SERTRALINE HYDROCHLORIDE
  5. IMODIUM [Concomitant]
     Active Substance: LOPERAMIDE HYDROCHLORIDE
  6. ULTRAM [Concomitant]
     Active Substance: TRAMADOL HYDROCHLORIDE
  7. VELETRI [Suspect]
     Active Substance: EPOPROSTENOL
     Indication: PULMONARY HYPERTENSION
     Dosage: 40 NG/KG, PER MIN
     Route: 042
     Dates: start: 20121112
  8. HEPARIN [Concomitant]
     Active Substance: HEPARIN SODIUM
  9. LOVENOX [Concomitant]
     Active Substance: ENOXAPARIN SODIUM
  10. FERROUS GLUCONATE [Concomitant]
     Active Substance: FERROUS GLUCONATE
  11. GABAPENTIN. [Concomitant]
     Active Substance: GABAPENTIN
  12. KEPPRA [Concomitant]
     Active Substance: LEVETIRACETAM
  13. ZAROXOLYN [Concomitant]
     Active Substance: METOLAZONE
  14. PHENERGAN [Concomitant]
     Active Substance: PROMETHAZINE HYDROCHLORIDE
  15. ADCIRCA [Concomitant]
     Active Substance: TADALAFIL
     Dosage: 40 MG, UNK
  16. BENADRYL [Concomitant]
     Active Substance: DIPHENHYDRAMINE HYDROCHLORIDE
  17. HYDROCORTISONE. [Concomitant]
     Active Substance: HYDROCORTISONE
  18. KAY CIEL [Concomitant]
     Active Substance: POTASSIUM CHLORIDE
  19. OXYGEN. [Concomitant]
     Active Substance: OXYGEN
  20. LETAIRIS [Concomitant]
     Active Substance: AMBRISENTAN
     Dosage: 10 MG, UNK
  21. REVATIO [Concomitant]
     Active Substance: SILDENAFIL CITRATE
  22. ACETAMINOPHEN. [Concomitant]
     Active Substance: ACETAMINOPHEN
  23. NEXIUM [Concomitant]
     Active Substance: ESOMEPRAZOLE MAGNESIUM
  24. THROMBIN [Concomitant]
     Active Substance: THROMBIN
  25. LORTAB [Concomitant]
     Active Substance: ACETAMINOPHEN\HYDROCODONE BITARTRATE
  26. WARFARIN [Concomitant]
     Active Substance: WARFARIN
  27. MIDODRINE [Concomitant]
     Active Substance: MIDODRINE

REACTIONS (29)
  - Pulseless electrical activity [Unknown]
  - Hepatic ischaemia [Unknown]
  - Pneumonia [Unknown]
  - Catheter placement [Recovered/Resolved]
  - Dialysis [Unknown]
  - Cerebrovascular accident [Recovered/Resolved]
  - Dysarthria [Recovered/Resolved]
  - Hemiparesis [Recovered/Resolved]
  - Acute respiratory distress syndrome [Unknown]
  - Acute kidney injury [Unknown]
  - Dyspnoea [Unknown]
  - Blood culture negative [Unknown]
  - Jaw disorder [Unknown]
  - Liver function test increased [Unknown]
  - Septic shock [Recovered/Resolved]
  - Pulmonary hypertension [Unknown]
  - Generalised erythema [Unknown]
  - Pulmonary embolism [Unknown]
  - Organ failure [Unknown]
  - Rectal haemorrhage [Unknown]
  - Right ventricular failure [Unknown]
  - Balance disorder [Unknown]
  - Embolism [Unknown]
  - Upper respiratory tract infection [Unknown]
  - Oliguria [Unknown]
  - Cellulitis [Unknown]
  - Asthenia [Unknown]
  - Respiratory failure [Recovered/Resolved]
  - Fall [Unknown]

NARRATIVE: CASE EVENT DATE: 20141021
